FAERS Safety Report 6179802-X (Version None)
Quarter: 2009Q2

REPORT INFORMATION
  Report Type: 
  Country: None (occurrence: None)
  Receive Date: 20090501
  Receipt Date: 20090415
  Transmission Date: 20091009
  Serious: Yes (Hospitalization)
  Sender: FDA-Public Use
  Company Number: ADE# 09-077DPR

PATIENT
  Age: 80 Year
  Sex: Male

DRUGS (1)
  1. DIGOXIN [Suspect]
     Indication: ATRIAL FIBRILLATION
     Dates: end: 20090330

REACTIONS (3)
  - CARDIOACTIVE DRUG LEVEL INCREASED [None]
  - DISORIENTATION [None]
  - HEADACHE [None]
